FAERS Safety Report 12232359 (Version 3)
Quarter: 2016Q2

REPORT INFORMATION
  Report Type: Report from Study
  Country: US (occurrence: US)
  Receive Date: 20160401
  Receipt Date: 20160422
  Transmission Date: 20160815
  Serious: Yes (Hospitalization)
  Sender: FDA-Public Use
  Company Number: US-ACTELION-A-NJ2016-132247

PATIENT
  Age: 61 Year
  Sex: Female

DRUGS (4)
  1. OPSUMIT [Suspect]
     Active Substance: MACITENTAN
     Indication: PULMONARY ARTERIAL HYPERTENSION
     Dosage: 10 MG, QD
     Route: 048
     Dates: start: 20160129
  2. VELETRI [Suspect]
     Active Substance: EPOPROSTENOL
     Indication: PULMONARY ARTERIAL HYPERTENSION
     Dosage: 25 NG/KG, PER MIN
     Route: 042
     Dates: start: 20151021
  3. POTASSIUM [Concomitant]
     Active Substance: POTASSIUM
  4. SILDENAFIL. [Concomitant]
     Active Substance: SILDENAFIL

REACTIONS (14)
  - Liver disorder [Unknown]
  - Erythema [Unknown]
  - Nausea [Unknown]
  - Cholelithiasis [Unknown]
  - Weight decreased [Unknown]
  - Abdominal discomfort [Unknown]
  - Diarrhoea [Unknown]
  - Abdominal distension [Unknown]
  - Cough [Unknown]
  - Oedema peripheral [Unknown]
  - Fluid overload [Unknown]
  - Catheter site pruritus [Unknown]
  - Hepatomegaly [Unknown]
  - Constipation [Unknown]

NARRATIVE: CASE EVENT DATE: 201603
